FAERS Safety Report 5051285-2 (Version None)
Quarter: 2006Q3

REPORT INFORMATION
  Report Type: 
  Country: None (occurrence: None)
  Receive Date: 20060710
  Receipt Date: 20040722
  Transmission Date: 20061208
  Serious: Yes (Hospitalization)
  Sender: FDA-Public Use
  Company Number: FR9369810DEC2002

PATIENT
  Age: 56 Year
  Sex: Female

DRUGS (6)
  1. RAPAMUNE [Suspect]
     Indication: RENAL TRANSPLANT
     Dosage: 10 MG 1X PER 1 DAY ORAL
     Route: 048
     Dates: start: 20021110
  2. PREDNISONE TAB [Concomitant]
  3. CELLCEPT [Concomitant]
  4. AMLODIPINE BESYLATE [Concomitant]
  5. TAHOR (ATORVASTATIN) [Concomitant]
  6. EPOETIN BETA (EPOETIN BETA) [Concomitant]

REACTIONS (3)
  - KIDNEY TRANSPLANT REJECTION [None]
  - LYMPHOCELE [None]
  - RENAL FAILURE ACUTE [None]
